FAERS Safety Report 5897004-9 (Version None)
Quarter: 2008Q3

REPORT INFORMATION
  Report Type: 
  Country: None (occurrence: None)
  Receive Date: 20080924
  Receipt Date: 20080115
  Transmission Date: 20090109
  Serious: Yes (Other)
  Sender: FDA-Public Use
  Company Number: US-ASTRAZENECA-2008UW01173

PATIENT
  Age: 695 Month
  Sex: Female

DRUGS (3)
  1. SEROQUEL [Suspect]
     Indication: DEPRESSION
     Dosage: 200-600 MG
     Route: 048
     Dates: start: 20040601, end: 20071201
  2. SEROQUEL [Suspect]
     Indication: ANXIETY
     Dosage: 200-600 MG
     Route: 048
     Dates: start: 20040601, end: 20071201
  3. SEROQUEL [Suspect]
     Indication: INSOMNIA
     Dosage: 200-600 MG
     Route: 048
     Dates: start: 20040601, end: 20071201

REACTIONS (2)
  - DIABETES MELLITUS [None]
  - DIABETIC KETOACIDOSIS [None]
